FAERS Safety Report 9960634 (Version 1)
Quarter: 2014Q1

REPORT INFORMATION
  Report Type: Report from Study
  Country: US (occurrence: US)
  Receive Date: 20140305
  Receipt Date: 20140305
  Transmission Date: 20141002
  Serious: No
  Sender: FDA-Public Use
  Company Number: US-ABBVIE-13P-163-1108731-00

PATIENT
  Age: 45 Year
  Sex: Female

DRUGS (7)
  1. HUMIRA [Suspect]
     Indication: CROHN^S DISEASE
     Dates: start: 201304, end: 20130618
  2. ASPIRIN [Concomitant]
     Indication: CARDIOVASCULAR EVENT PROPHYLAXIS
     Dosage: 81 MG 1 A DAY
  3. MULTIVITAMIN [Concomitant]
     Indication: VITAMIN SUPPLEMENTATION
     Dosage: 1 A DAY
  4. ATENOLOL [Concomitant]
     Indication: TACHYCARDIA
     Dosage: 50 MG 1 A DAY
  5. ORSYTHIA [Concomitant]
     Indication: ORAL CONTRACEPTION
     Dosage: 0.1 MG 1 A DAY
  6. PANTOPRAZOLE [Concomitant]
     Indication: GASTROOESOPHAGEAL REFLUX DISEASE
     Dosage: 1 A DAY
  7. FIBRO LAXATIVE [Concomitant]
     Indication: CROHN^S DISEASE
     Dosage: 2 A DAY

REACTIONS (3)
  - Injection site reaction [Not Recovered/Not Resolved]
  - Injection site reaction [Recovered/Resolved]
  - Injection site reaction [Not Recovered/Not Resolved]
